FAERS Safety Report 5360027-2 (Version None)
Quarter: 2007Q2

REPORT INFORMATION
  Report Type: 
  Country: None (occurrence: None)
  Receive Date: 20070618
  Receipt Date: 20070607
  Transmission Date: 20071010
  Serious: No
  Sender: FDA-Public Use
  Company Number: US-JNJFOC-20070602209

PATIENT
  Age: 36 Year
  Sex: Female

DRUGS (8)
  1. INVEGA [Suspect]
     Indication: POST-TRAUMATIC STRESS DISORDER
     Route: 048
     Dates: start: 20070526, end: 20070604
  2. LEXAPRO [Concomitant]
     Route: 048
  3. LAMICTAL [Concomitant]
     Route: 048
  4. TOPAMAX [Concomitant]
     Route: 048
  5. PERPHENAZINE [Concomitant]
     Dosage: 8 MG STRENGTH TABLETS
     Route: 048
  6. ZETIA [Concomitant]
     Route: 048
  7. SINGULAIR [Concomitant]
     Route: 048
  8. VITAMIN B COMPLEX CAP [Concomitant]
     Route: 048

REACTIONS (2)
  - ABDOMINAL DISTENSION [None]
  - JOINT SWELLING [None]
